FAERS Safety Report 8410253-0 (Version None)
Quarter: 2012Q2

REPORT INFORMATION
  Report Type: 
  Country: None (occurrence: None)
  Receive Date: 20120605
  Receipt Date: 20120531
  Transmission Date: 20120825
  Serious: Yes (Other)
  Sender: FDA-Public Use
  Company Number: PHHY2012NL047241

PATIENT
  Sex: Male

DRUGS (3)
  1. ZOMETA [Suspect]
     Dosage: 4MG/100ML SOLUTION FOR INTRAVENOUS INFUSION (300ML/H) ONCE PER 28 DAYS
     Route: 042
     Dates: start: 20120529
  2. ZOMETA [Suspect]
     Indication: PROSTATE CANCER METASTATIC
     Dosage: 4MG/100ML SOLUTION FOR INTRAVENOUS INFUSION (300ML/H) ONCE PER 28 DAYS
     Route: 042
     Dates: start: 20110905
  3. ZOMETA [Suspect]
     Dosage: 4MG/100ML SOLUTION FOR INTRAVENOUS INFUSION (300ML/H) ONCE PER 28 DAYS
     Route: 042
     Dates: start: 20120504

REACTIONS (3)
  - GENERAL PHYSICAL HEALTH DETERIORATION [None]
  - TERMINAL STATE [None]
  - MALAISE [None]
